FAERS Safety Report 8483670-0 (Version None)
Quarter: 2012Q3

REPORT INFORMATION
  Report Type: 
  Country: None (occurrence: None)
  Receive Date: 20120703
  Receipt Date: 20120620
  Transmission Date: 20120928
  Serious: Yes (Other)
  Sender: FDA-Public Use
  Company Number: TR-MYLANLABS-2012S1013056

PATIENT
  Age: 17 Year
  Sex: Female

DRUGS (5)
  1. MELPHALAN HYDROCHLORIDE [Concomitant]
     Indication: STEM CELL TRANSPLANT
     Route: 065
  2. CYTARABINE [Concomitant]
     Indication: STEM CELL TRANSPLANT
     Route: 065
  3. DIMETHYL SULFOXIDE [Suspect]
     Indication: STEM CELL TRANSPLANT
     Dosage: 30ML
  4. CARMUSTINE [Concomitant]
     Indication: STEM CELL TRANSPLANT
     Route: 065
  5. ETOPOSIDE [Concomitant]
     Indication: STEM CELL TRANSPLANT
     Route: 065

REACTIONS (4)
  - HEADACHE [None]
  - BLINDNESS TRANSIENT [None]
  - HYPOAESTHESIA [None]
  - PARAESTHESIA [None]
